FAERS Safety Report 15281812 (Version 1)
Quarter: 2018Q4

REPORT INFORMATION
  Report Type: Spontaneous
  Country: CH (occurrence: CH)
  Receive Date: 20180815
  Receipt Date: 20180815
  Transmission Date: 20190204
  Serious: Yes (Other)
  Sender: FDA-Public Use
  Company Number: CH-PFIZER INC-2018328481

PATIENT
  Age: 41 Year
  Sex: Female
  Weight: 107 kg

DRUGS (9)
  1. REDORMIN (REMIFENTANIL HYDROCHLORIDE) [Suspect]
     Active Substance: REMIFENTANIL HYDROCHLORIDE
     Dosage: 250-500 MG AT BEDTIME, AS NEEDED
  2. METFIN [Suspect]
     Active Substance: METFORMIN HYDROCHLORIDE
     Dosage: 1000 MG, 3X/DAY
     Route: 048
     Dates: end: 20180507
  3. MONURIL [Suspect]
     Active Substance: FOSFOMYCIN TROMETHAMINE
     Indication: URINARY TRACT INFECTION
     Dosage: 1 UNIQUE DOSE ON 25APR2018; IN TOTAL
     Route: 048
     Dates: start: 20180425, end: 20180425
  4. VALVERDE [Suspect]
     Active Substance: HERBALS
     Dosage: 1 DF, AS NECESSARY
     Route: 048
  5. VICTOZA [Suspect]
     Active Substance: LIRAGLUTIDE
     Indication: TYPE 2 DIABETES MELLITUS
     Dosage: 1.8 MG, 1X/DAY
     Route: 058
     Dates: end: 20180507
  6. PANADOL [Suspect]
     Active Substance: ACETAMINOPHEN
     Dosage: 665 MG, AS NECESSARY
     Route: 048
  7. LANTUS [Suspect]
     Active Substance: INSULIN GLARGINE
     Dosage: 56 IU, 1X/DAY
     Route: 058
  8. MAGNESIOCARD [Suspect]
     Active Substance: MAGNESIUM ASPARTATE HYDROCHLORIDE
     Dosage: 7.5 MMOL, 1X/DAY IN RESERVE
  9. SORTIS [Suspect]
     Active Substance: ATORVASTATIN
     Dosage: 40 MG, 1X/DAY
     Route: 048
     Dates: end: 20180502

REACTIONS (1)
  - Abortion spontaneous [Unknown]

NARRATIVE: CASE EVENT DATE: 20180602
